FAERS Safety Report 6243435-7 (Version None)
Quarter: 2009Q2

REPORT INFORMATION
  Report Type: 
  Country: None (occurrence: None)
  Receive Date: 20090624
  Receipt Date: 20090616
  Transmission Date: 20091009
  Serious: Yes (Hospitalization, Other)
  Sender: FDA-Public Use
  Company Number: US-JNJFOC-20090502368

PATIENT
  Sex: Female
  Weight: 31.5 kg

DRUGS (6)
  1. REMICADE [Suspect]
     Route: 042
  2. REMICADE [Suspect]
     Indication: CROHN'S DISEASE
     Route: 042
  3. PENTASA [Concomitant]
     Indication: CROHN'S DISEASE
  4. ADDERALL XR 20 [Concomitant]
     Indication: ATTENTION DEFICIT/HYPERACTIVITY DISORDER
  5. MULTI-VITAMINS [Concomitant]
  6. ALBUTEROL [Concomitant]
     Indication: ASTHMA

REACTIONS (1)
  - CAT SCRATCH DISEASE [None]
